FAERS Safety Report 8339352-9 (Version None)
Quarter: 2012Q2

REPORT INFORMATION
  Report Type: 
  Country: None (occurrence: None)
  Receive Date: 20120507
  Receipt Date: 20120330
  Transmission Date: 20120825
  Serious: Yes (Other)
  Sender: FDA-Public Use
  Company Number: US-PFIZER INC-2012108462

PATIENT
  Sex: Female

DRUGS (1)
  1. BENZYLPENICILLIN POTASSIUM [Suspect]

REACTIONS (1)
  - ANAPHYLACTIC REACTION [None]
